FAERS Safety Report 6697222-6 (Version None)
Quarter: 2010Q2

REPORT INFORMATION
  Report Type: 
  Country: None (occurrence: None)
  Receive Date: 20100426
  Receipt Date: 20100416
  Transmission Date: 20101027
  Serious: Yes (Hospitalization)
  Sender: FDA-Public Use
  Company Number: AU-PFIZER INC-2008153102

PATIENT
  Age: 53 Year
  Sex: Male
  Weight: 77 kg

DRUGS (8)
  1. IRINOTECAN HCL [Suspect]
     Indication: COLORECTAL CANCER
     Dosage: 350 MG, EVERY 2 WEEKS
     Route: 042
     Dates: start: 20080811, end: 20081201
  2. FLUOROURACIL [Suspect]
     Indication: COLORECTAL CANCER
     Dosage: 750 MG, LOADING DOSE
     Route: 042
     Dates: start: 20080811, end: 20081203
  3. FLUOROURACIL [Suspect]
     Dosage: 4700 MG, INFUSION EVERY 2 WKS
     Route: 042
     Dates: start: 20080811, end: 20081203
  4. CALCIUM FOLINATE [Suspect]
     Indication: COLORECTAL CANCER
     Dosage: 390 MG, EVERY 2 WKS
     Route: 042
     Dates: start: 20080811, end: 20081201
  5. SUNITINIB MALATE [Suspect]
     Indication: COLORECTAL CANCER
     Dosage: 25 MG, EVERY DAY
     Route: 048
     Dates: start: 20080811
  6. ATROPINE [Concomitant]
     Indication: PROPHYLAXIS
     Dosage: 0.6 MG, UNK
     Dates: start: 20080811
  7. ONDANSETRON [Concomitant]
     Indication: PROPHYLAXIS OF NAUSEA AND VOMITING
     Dosage: 8 MG, UNK
     Dates: start: 20080811
  8. DEXAMETHASONE [Concomitant]
     Indication: PROPHYLAXIS OF NAUSEA AND VOMITING
     Dosage: 8 MG, UNK
     Dates: start: 20080811

REACTIONS (1)
  - ANAL ABSCESS [None]
